FAERS Safety Report 7021875-6 (Version None)
Quarter: 2010Q3

REPORT INFORMATION
  Report Type: 
  Country: None (occurrence: None)
  Receive Date: 20100928
  Receipt Date: 20100914
  Transmission Date: 20110219
  Serious: Yes (Hospitalization)
  Sender: FDA-Public Use
  Company Number: DSJ-2010-17148

PATIENT
  Age: 55 Year
  Sex: Female

DRUGS (4)
  1. BENICAR HCT [Suspect]
     Indication: HYPERTENSION
     Dosage: 40/12.5 MG (1 IN 1 D), PER ORAL; 20/6.25 MG (1 IN 1 D), PER ORAL; 20/12.5 MG (1 IN 1 D), PER ORAL
     Route: 048
     Dates: start: 20091001, end: 20100801
  2. BENICAR HCT [Suspect]
     Indication: HYPERTENSION
     Dosage: 40/12.5 MG (1 IN 1 D), PER ORAL; 20/6.25 MG (1 IN 1 D), PER ORAL; 20/12.5 MG (1 IN 1 D), PER ORAL
     Route: 048
     Dates: start: 20100801, end: 20100901
  3. BENICAR HCT [Suspect]
     Indication: HYPERTENSION
     Dosage: 40/12.5 MG (1 IN 1 D), PER ORAL; 20/6.25 MG (1 IN 1 D), PER ORAL; 20/12.5 MG (1 IN 1 D), PER ORAL
     Route: 048
     Dates: start: 20100901
  4. LEVOTHYROXINE SODIUM (LEVOTHYROXINE SODIUM) (LEVOTHYROXINE SODIUM) [Concomitant]

REACTIONS (6)
  - ARTERIOSCLEROSIS [None]
  - HEADACHE [None]
  - HYPOAESTHESIA [None]
  - HYPOTENSION [None]
  - MALAISE [None]
  - SYNCOPE [None]
